FAERS Safety Report 10871128 (Version 1)
Quarter: 2015Q1

REPORT INFORMATION
  Report Type: Spontaneous
  Country: US (occurrence: US)
  Receive Date: 20150226
  Receipt Date: 20150226
  Transmission Date: 20150721
  Serious: Yes (Death)
  Sender: FDA-Public Use
  Company Number: US-BANPHARM-20153494

PATIENT
  Age: 49 Year
  Sex: Male

DRUGS (3)
  1. DIPHENHYDRAMINE UNKNOWN PRODUCT [Suspect]
     Active Substance: DIPHENHYDRAMINE
  2. CARBON MONOXIDE [Suspect]
     Active Substance: CARBON MONOXIDE
  3. ETHANOL [Suspect]
     Active Substance: ALCOHOL

REACTIONS (1)
  - Completed suicide [Fatal]
